FAERS Safety Report 9797083 (Version 1)
Quarter: 2014Q1

REPORT INFORMATION
  Report Type: Spontaneous
  Country: CA (occurrence: CA)
  Receive Date: 20140105
  Receipt Date: 20140105
  Transmission Date: 20141002
  Serious: Yes (Other)
  Sender: FDA-Public Use
  Company Number: CA-MYLANLABS-2013S1029020

PATIENT
  Age: 57 Year
  Sex: Female

DRUGS (7)
  1. METFORMIN [Suspect]
     Indication: WEIGHT CONTROL
     Route: 065
  2. METFORMIN [Suspect]
     Indication: DIABETES MELLITUS
     Route: 065
  3. METFORMIN [Suspect]
     Indication: PROPHYLAXIS
     Route: 065
  4. ASPIRIN [Concomitant]
     Dosage: 80MG DAILY
     Route: 065
  5. ROSUVASTATIN [Concomitant]
     Dosage: 10MG DAILY
     Route: 065
  6. VALSARTAN [Concomitant]
     Dosage: 320MG DAILY
     Route: 065
  7. HYDROCHLOROTHIAZIDE [Concomitant]
     Indication: HYPERTENSION
     Dosage: 25MG DAILY
     Route: 065

REACTIONS (1)
  - Vaginal haemorrhage [Unknown]
